FAERS Safety Report 10297133 (Version 1)
Quarter: 2014Q3

REPORT INFORMATION
  Report Type: Spontaneous
  Country: US (occurrence: US)
  Receive Date: 20140711
  Receipt Date: 20140711
  Transmission Date: 20150326
  Serious: No
  Sender: FDA-Public Use
  Company Number: US-BIOGENIDEC-2014BI066852

PATIENT
  Sex: Female

DRUGS (1)
  1. TYSABRI [Suspect]
     Active Substance: NATALIZUMAB
     Indication: MULTIPLE SCLEROSIS
     Route: 042
     Dates: start: 20100517

REACTIONS (7)
  - Vein disorder [Unknown]
  - Malaise [Unknown]
  - Memory impairment [Unknown]
  - Hypersomnia [Unknown]
  - Accident [Unknown]
  - Fall [Recovered/Resolved]
  - Fatigue [Unknown]
